FAERS Safety Report 4772595-X (Version None)
Quarter: 2005Q3

REPORT INFORMATION
  Report Type: 
  Country: None (occurrence: None)
  Receive Date: 20050916
  Receipt Date: 20050916
  Transmission Date: 20060218
  Serious: Yes (Death)
  Sender: FDA-Public Use
  Company Number: None

PATIENT
  Age: 20 Year
  Sex: Male
  Weight: 61.2356 kg

DRUGS (1)
  1. INAPSINE [Suspect]
     Dosage: 1.25M
     Dates: start: 20040712, end: 20040712

REACTIONS (7)
  - ANXIETY [None]
  - BRAIN DEATH [None]
  - DYSPNOEA [None]
  - PARAESTHESIA [None]
  - RESPIRATORY ARREST [None]
  - RESTLESSNESS [None]
  - TACHYCARDIA [None]
